FAERS Safety Report 18269652 (Version 2)
Quarter: 2020Q4

REPORT INFORMATION
  Report Type: Report from Study
  Country: None (occurrence: US)
  Receive Date: 20200916
  Receipt Date: 20201015
  Transmission Date: 20210113
  Serious: Yes (Other)
  Sender: FDA-Public Use
  Company Number: US-ABBVIE-20K-163-3562488-00

PATIENT
  Age: 51 Year
  Sex: Male

DRUGS (1)
  1. HUMIRA [Suspect]
     Active Substance: ADALIMUMAB
     Indication: CROHN^S DISEASE
     Route: 058

REACTIONS (17)
  - Gastric disorder [Unknown]
  - Tooth extraction [Unknown]
  - Pain [Not Recovered/Not Resolved]
  - Disability [Not Recovered/Not Resolved]
  - Constipation [Recovered/Resolved]
  - Tooth infection [Recovered/Resolved]
  - Drug ineffective [Unknown]
  - Intestinal obstruction [Recovered/Resolved]
  - Abdominal pain upper [Unknown]
  - Toothache [Recovered/Resolved]
  - Feeling abnormal [Unknown]
  - Asthenia [Not Recovered/Not Resolved]
  - Food intolerance [Unknown]
  - Skull fracture [Unknown]
  - Tooth fracture [Recovered/Resolved]
  - Vomiting [Unknown]
  - Localised infection [Unknown]

NARRATIVE: CASE EVENT DATE: 202003
